FAERS Safety Report 9734565 (Version 5)
Quarter: 2014Q3

REPORT INFORMATION
  Report Type: Report from Study
  Country: BR (occurrence: BR)
  Receive Date: 20131206
  Receipt Date: 20140923
  Transmission Date: 20150326
  Serious: Yes (Other)
  Sender: FDA-Public Use
  Company Number: BR-ROCHE-1314476

PATIENT
  Sex: Female
  Weight: 47 kg

DRUGS (15)
  1. PROTOS (BRAZIL) [Concomitant]
     Active Substance: STRONTIUM RANELATE
  2. AMITRIPTYLINE [Concomitant]
     Active Substance: AMITRIPTYLINE
  3. TYLEX (BRAZIL) [Concomitant]
  4. SIMVASTATIN. [Concomitant]
     Active Substance: SIMVASTATIN
  5. DILTIAZEM [Concomitant]
     Active Substance: DILTIAZEM
  6. LABIRIN [Concomitant]
     Active Substance: BETAHISTINE
  7. FOLIC ACID. [Concomitant]
     Active Substance: FOLIC ACID
  8. PURAN [Concomitant]
     Active Substance: LEVOTHYROXINE SODIUM
  9. OMEPRAZOLE. [Concomitant]
     Active Substance: OMEPRAZOLE
  10. PARACETAMOL [Concomitant]
     Active Substance: ACETAMINOPHEN
  11. MABTHERA [Suspect]
     Active Substance: RITUXIMAB
     Indication: RHEUMATOID ARTHRITIS
     Dosage: 10MG/10 ML, 2 AMPOULE
     Route: 042
     Dates: start: 20131119, end: 20131205
  12. GLIFAGE [Concomitant]
     Active Substance: METFORMIN HYDROCHLORIDE
  13. MABTHERA [Suspect]
     Active Substance: RITUXIMAB
     Route: 042
     Dates: start: 20131205
  14. PREDNISONE. [Concomitant]
     Active Substance: PREDNISONE
  15. METHOTREXATE [Concomitant]
     Active Substance: METHOTREXATE

REACTIONS (7)
  - Fall [Unknown]
  - Medical device complication [Not Recovered/Not Resolved]
  - Arthropathy [Not Recovered/Not Resolved]
  - Drug ineffective [Unknown]
  - Therapeutic response decreased [Unknown]
  - Pain [Not Recovered/Not Resolved]
  - Joint swelling [Not Recovered/Not Resolved]
